FAERS Safety Report 11452609 (Version 1)
Quarter: 2015Q3

REPORT INFORMATION
  Report Type: Spontaneous
  Country: US (occurrence: US)
  Receive Date: 20150831
  Receipt Date: 20150831
  Transmission Date: 20151125
  Serious: Yes (Other)
  Sender: FDA-Public Use
  Company Number: US-ELI_LILLY_AND_COMPANY-US200910002750

PATIENT
  Age: 51 Year
  Sex: Male
  Weight: 94.33 kg

DRUGS (25)
  1. CYMBALTA [Suspect]
     Active Substance: DULOXETINE HYDROCHLORIDE
     Indication: SPINAL CORD COMPRESSION
     Dates: start: 200505
  2. LYRICA [Concomitant]
     Active Substance: PREGABALIN
     Dosage: 200 MG, 3/D
     Dates: start: 20090908
  3. DIAZEPAM. [Concomitant]
     Active Substance: DIAZEPAM
     Dosage: 2.5 MG, EACH MORNING
  4. TRIAMCINOLONE [Concomitant]
     Active Substance: TRIAMCINOLONE
     Indication: DRY SKIN
     Route: 061
     Dates: start: 20090219
  5. WELLBUTRIN XL [Concomitant]
     Active Substance: BUPROPION HYDROCHLORIDE
     Dosage: 150 MG, EACH MORNING
     Route: 048
     Dates: start: 20080813
  6. UMECTA [Concomitant]
     Active Substance: HYALURONATE SODIUM\UREA
     Indication: DRY SKIN
     Dosage: UNK, 2/D
     Route: 061
     Dates: start: 20090219
  7. LOPID [Concomitant]
     Active Substance: GEMFIBROZIL
     Dosage: 600 MG, 2/D
     Route: 048
     Dates: start: 20090917
  8. LYRICA [Concomitant]
     Active Substance: PREGABALIN
     Dosage: 200 MG, 4/D
     Dates: start: 20090812
  9. NORCO [Concomitant]
     Active Substance: ACETAMINOPHEN\HYDROCODONE BITARTRATE
     Dosage: 1 D/F, EACH MORNING
  10. TERAZOSIN [Concomitant]
     Active Substance: TERAZOSIN\TERAZOSIN HYDROCHLORIDE
     Dosage: 10 MG, EACH EVENING
     Route: 048
     Dates: start: 20070802
  11. NIASPAN [Concomitant]
     Active Substance: NIACIN
     Indication: HYPERLIPIDAEMIA
     Dosage: 100 MG, DAILY (1/D)
     Dates: start: 20070815
  12. LEVOXYL [Concomitant]
     Active Substance: LEVOTHYROXINE SODIUM
     Dosage: 125 UG, DAILY (1/D)
     Route: 048
     Dates: start: 20090723
  13. MARINOL [Concomitant]
     Active Substance: DRONABINOL
     Dosage: 5 MG, AS NEEDED
     Dates: start: 20090504
  14. CYMBALTA [Suspect]
     Active Substance: DULOXETINE HYDROCHLORIDE
     Dosage: 60 MG, EACH EVENING
     Dates: end: 20090812
  15. NEURONTIN [Concomitant]
     Active Substance: GABAPENTIN
     Indication: NEURALGIA
     Route: 048
     Dates: start: 200503
  16. LYRICA [Concomitant]
     Active Substance: PREGABALIN
     Indication: NEURALGIA
     Dosage: UNK, UNK
     Dates: start: 200505
  17. AEROBID [Concomitant]
     Active Substance: FLUNISOLIDE
     Dosage: 250 UG, 2/D
     Route: 055
     Dates: start: 20090628
  18. NEURONTIN [Concomitant]
     Active Substance: GABAPENTIN
     Dosage: 300 MG, 4/D
     Dates: start: 20090812
  19. NORCO [Concomitant]
     Active Substance: ACETAMINOPHEN\HYDROCODONE BITARTRATE
     Dosage: 0.5 D/F, 3/D
     Dates: start: 20090922
  20. ECONAZOLE [Concomitant]
     Active Substance: ECONAZOLE
     Route: 061
     Dates: start: 20090219
  21. NEURONTIN [Concomitant]
     Active Substance: GABAPENTIN
     Dosage: 300 MG, 3/D
     Route: 048
     Dates: start: 20090731, end: 2009
  22. SKELAXIN [Concomitant]
     Active Substance: METAXALONE
     Dosage: 800 MG, 3/D
     Dates: start: 20090522
  23. DIAZEPAM. [Concomitant]
     Active Substance: DIAZEPAM
     Dosage: 5 MG, 2/D
     Dates: start: 20090922
  24. PROVENTIL HFA [Concomitant]
     Active Substance: ALBUTEROL SULFATE
     Dosage: 2 D/F, 2/D
     Route: 055
     Dates: start: 20080620
  25. FLUTICASONE [Concomitant]
     Active Substance: FLUTICASONE\FLUTICASONE PROPIONATE
     Dosage: 2 D/F, DAILY (1/D)
     Route: 045
     Dates: start: 20090908

REACTIONS (14)
  - Muscle spasms [Unknown]
  - Adverse drug reaction [Unknown]
  - Headache [Unknown]
  - Weight decreased [Recovered/Resolved]
  - Vomiting [Unknown]
  - Off label use [Recovered/Resolved]
  - Nightmare [Unknown]
  - Dizziness [Unknown]
  - Disorientation [Recovered/Resolved]
  - Dry mouth [Unknown]
  - Disturbance in attention [Unknown]
  - Abdominal distension [Unknown]
  - Confusional state [Recovered/Resolved]
  - Low density lipoprotein increased [Unknown]

NARRATIVE: CASE EVENT DATE: 200505
